FAERS Safety Report 23982874 (Version 1)
Quarter: 2024Q2

REPORT INFORMATION
  Report Type: Spontaneous
  Country: PR (occurrence: PR)
  Receive Date: 20240617
  Receipt Date: 20240617
  Transmission Date: 20240716
  Serious: No
  Sender: FDA-Public Use
  Company Number: PR-ABBVIE-5802554

PATIENT
  Age: 42 Year
  Sex: Female

DRUGS (1)
  1. VRAYLAR [Suspect]
     Active Substance: CARIPRAZINE
     Indication: Bipolar I disorder
     Dosage: FORM STRENGTH: 3 MG
     Route: 048

REACTIONS (1)
  - Abdominal pain [Recovered/Resolved]
